FAERS Safety Report 23771624 (Version 2)
Quarter: 2024Q2

REPORT INFORMATION
  Report Type: Spontaneous
  Country: JP (occurrence: JP)
  Receive Date: 20240423
  Receipt Date: 20240502
  Transmission Date: 20240716
  Serious: Yes (Other)
  Sender: FDA-Public Use
  Company Number: JP-CHUGAI-2024012738

PATIENT
  Age: 71 Year
  Sex: Male

DRUGS (1)
  1. HEMLIBRA [Suspect]
     Active Substance: EMICIZUMAB-KXWH
     Indication: Haemophilia A without inhibitors
     Dosage: 300 MILLIGRAM, ONCE/4WEEKS
     Route: 058
     Dates: start: 20190701

REACTIONS (4)
  - Pneumonia aspiration [Recovered/Resolved]
  - Hemiplegia [Unknown]
  - Loss of personal independence in daily activities [Unknown]
  - Infection [Unknown]

NARRATIVE: CASE EVENT DATE: 20240408
